FAERS Safety Report 5770603-0 (Version None)
Quarter: 2008Q2

REPORT INFORMATION
  Report Type: 
  Country: None (occurrence: None)
  Receive Date: 20080613
  Receipt Date: 20080507
  Transmission Date: 20081010
  Serious: No
  Sender: FDA-Public Use
  Company Number: US-ABBOTT-08P-163-0450933-00

PATIENT
  Sex: Female
  Weight: 63.56 kg

DRUGS (8)
  1. HUMIRA [Suspect]
     Indication: RHEUMATOID ARTHRITIS
     Route: 058
     Dates: start: 20080408
  2. METHOTREXATE [Concomitant]
     Indication: RHEUMATOID ARTHRITIS
     Route: 048
     Dates: start: 19930101
  3. TRAMADOL HCL [Concomitant]
     Indication: PAIN
     Dosage: 50MG X 2 PILLS
     Route: 048
     Dates: start: 20070401
  4. METHYLPREDNISOLONE [Concomitant]
     Indication: RHEUMATOID ARTHRITIS
     Route: 048
     Dates: start: 20080430, end: 20080506
  5. TOPIRAMATE [Concomitant]
     Indication: MIGRAINE
     Dosage: 200 MG AT BEDTIME
     Route: 048
     Dates: start: 20060101
  6. CYCLOBENZAPRINE HCL [Concomitant]
     Indication: PAIN
     Route: 048
     Dates: start: 20061201
  7. CLONAZEPAM [Concomitant]
     Indication: PANIC ATTACK
     Dosage: BEDTIME
     Route: 048
     Dates: start: 20060101
  8. REPLAVA [Concomitant]
     Indication: SICKLE CELL ANAEMIA
     Route: 048

REACTIONS (2)
  - ACCIDENTAL EXPOSURE [None]
  - PAIN [None]
